FAERS Safety Report 7809322-5 (Version None)
Quarter: 2011Q4

REPORT INFORMATION
  Report Type: 
  Country: None (occurrence: None)
  Receive Date: 20111006
  Receipt Date: 20110921
  Transmission Date: 20120403
  Serious: Yes (Other)
  Sender: FDA-Public Use
  Company Number: 2011AP001929

PATIENT
  Age: 34 Year
  Sex: Female

DRUGS (1)
  1. CITALOPRAM HYDROBROMIDE [Suspect]
     Indication: PRODUCT USED FOR UNKNOWN INDICATION
     Dosage: 10 MG

REACTIONS (17)
  - HEART RATE INCREASED [None]
  - TREMOR [None]
  - HEADACHE [None]
  - SENSORY DISTURBANCE [None]
  - CHEST DISCOMFORT [None]
  - HYPOAESTHESIA [None]
  - PARAESTHESIA [None]
  - PYREXIA [None]
  - PANIC ATTACK [None]
  - NECK PAIN [None]
  - CONVULSION [None]
  - AGITATION [None]
  - NASOPHARYNGITIS [None]
  - SENSORY LOSS [None]
  - FEELING COLD [None]
  - NUCHAL RIGIDITY [None]
  - CHILLS [None]
